FAERS Safety Report 18020327 (Version 2)
Quarter: 2021Q1

REPORT INFORMATION
  Report Type: Spontaneous
  Country: GB (occurrence: GB)
  Receive Date: 20200714
  Receipt Date: 20210129
  Transmission Date: 20210419
  Serious: Yes (Hospitalization)
  Sender: FDA-Public Use
  Company Number: GB-ASTRAZENECA-2019SF87419

PATIENT
  Sex: Female

DRUGS (6)
  1. RISPERDAL [Suspect]
     Active Substance: RISPERIDONE
     Indication: PSYCHOTIC DISORDER
     Dosage: 2.0MG UNKNOWN
     Route: 048
  2. ZOPICLONE [Suspect]
     Active Substance: ZOPICLONE
     Indication: PRODUCT USED FOR UNKNOWN INDICATION
     Dosage: 3.75MG UNKNOWN
     Route: 048
  3. CLONAZEPAM. [Suspect]
     Active Substance: CLONAZEPAM
     Dosage: 0.5MG UNKNOWN
     Route: 048
  4. QUETIAPINE. [Suspect]
     Active Substance: QUETIAPINE
     Indication: PSYCHOTIC DISORDER
     Dosage: 25.0MG UNKNOWN
     Route: 048
  5. MIRTAZAPINE. [Suspect]
     Active Substance: MIRTAZAPINE
     Indication: PRODUCT USED FOR UNKNOWN INDICATION
     Dosage: 30.0MG UNKNOWN
     Route: 048
  6. CLONAZEPAM. [Suspect]
     Active Substance: CLONAZEPAM
     Dosage: 2.0MG UNKNOWN
     Route: 048

REACTIONS (2)
  - Tardive dyskinesia [Unknown]
  - Akathisia [Unknown]
